FAERS Safety Report 24108993 (Version 1)
Quarter: 2024Q3

REPORT INFORMATION
  Report Type: Spontaneous
  Country: JP (occurrence: JP)
  Receive Date: 20240718
  Receipt Date: 20240718
  Transmission Date: 20241017
  Serious: Yes (Death, Life-Threatening, Hospitalization)
  Sender: ACCORD
  Company Number: JP-MLMSERVICE-20240701-PI118292-00059-1

PATIENT
  Age: 6 Decade
  Sex: Male

DRUGS (5)
  1. TACROLIMUS [Suspect]
     Active Substance: TACROLIMUS
     Indication: Product used for unknown indication
  2. AZATHIOPRINE [Suspect]
     Active Substance: AZATHIOPRINE
     Indication: Product used for unknown indication
  3. PREDNISOLONE [Suspect]
     Active Substance: PREDNISOLONE
     Indication: Product used for unknown indication
  4. IGURATIMOD [Suspect]
     Active Substance: IGURATIMOD
     Indication: Product used for unknown indication
  5. EDOXABAN [Concomitant]
     Active Substance: EDOXABAN

REACTIONS (6)
  - Mycobacterium avium complex infection [Fatal]
  - Haematological infection [Fatal]
  - Gastrointestinal bacterial infection [Fatal]
  - Skin bacterial infection [Fatal]
  - Pneumonia bacterial [Fatal]
  - Intestinal haemorrhage [Fatal]
